FAERS Safety Report 16042010 (Version 1)
Quarter: 2019Q1

REPORT INFORMATION
  Report Type: Report from Study
  Country: IT (occurrence: IT)
  Receive Date: 20190306
  Receipt Date: 20190306
  Transmission Date: 20190418
  Serious: Yes (Other)
  Sender: FDA-Public Use
  Company Number: IT-TEVA-2019-IT-1018429

PATIENT
  Age: 77 Year
  Sex: Male

DRUGS (2)
  1. SOTALEX 80 MG COMPRESSE [Suspect]
     Active Substance: SOTALOL
     Indication: EXTRASYSTOLES
     Dosage: 120 MILLIGRAM DAILY;
     Route: 048
     Dates: start: 20160308
  2. TAMSULOSIN HYDROCHLORIDE. [Suspect]
     Active Substance: TAMSULOSIN HYDROCHLORIDE
     Indication: BENIGN PROSTATIC HYPERPLASIA
     Dosage: .4 MILLIGRAM DAILY;
     Route: 048
     Dates: start: 20160325

REACTIONS (3)
  - Vision blurred [Recovered/Resolved]
  - Presyncope [Recovered/Resolved]
  - Fall [Recovered/Resolved]

NARRATIVE: CASE EVENT DATE: 20181211
